FAERS Safety Report 12461385 (Version 1)
Quarter: 2016Q2

REPORT INFORMATION
  Report Type: Spontaneous
  Country: US (occurrence: US)
  Receive Date: 20160613
  Receipt Date: 20160613
  Transmission Date: 20160815
  Serious: Yes (Other)
  Sender: FDA-Public Use
  Company Number: US-AMGEN-USASP2016074101

PATIENT
  Age: 33 Year
  Sex: Male

DRUGS (3)
  1. EPOGEN [Suspect]
     Active Substance: ERYTHROPOIETIN
     Indication: HYPERGAMMAGLOBULINAEMIA
     Dosage: UNK, UNK
     Route: 065
  2. MIRCERA [Suspect]
     Active Substance: METHOXY POLYETHYLENE GLYCOL-EPOETIN BETA
     Indication: HYPERGAMMAGLOBULINAEMIA
     Dosage: 100 MUG, UNK
     Route: 065
     Dates: start: 201506, end: 2015
  3. EPOGEN [Suspect]
     Active Substance: ERYTHROPOIETIN
     Dosage: UNK
     Route: 065
     Dates: start: 20150916

REACTIONS (5)
  - Liver disorder [Unknown]
  - Road traffic accident [Unknown]
  - Hypertension [Unknown]
  - Renal disorder [Unknown]
  - Seizure [Unknown]

NARRATIVE: CASE EVENT DATE: 2015
